FAERS Safety Report 12984193 (Version 1)
Quarter: 2016Q4

REPORT INFORMATION
  Report Type: Report from Study
  Country: FR (occurrence: FR)
  Receive Date: 20161129
  Receipt Date: 20161129
  Transmission Date: 20170207
  Serious: Yes (Death, Hospitalization)
  Sender: FDA-Public Use
  Company Number: FR-INCYTE CORPORATION-2016IN007588

PATIENT
  Age: 67 Year
  Sex: Female

DRUGS (2)
  1. JAKAVI [Suspect]
     Active Substance: RUXOLITINIB
     Dosage: 5 MG, OT
     Route: 048
     Dates: start: 20151211
  2. JAKAVI [Suspect]
     Active Substance: RUXOLITINIB
     Indication: MYELOFIBROSIS
     Dosage: 10 MG, QD (FOR 6 DAYS)
     Route: 048

REACTIONS (6)
  - General physical health deterioration [Unknown]
  - Respiratory tract congestion [Recovering/Resolving]
  - Ascites [Recovering/Resolving]
  - Flatulence [Unknown]
  - Death [Fatal]
  - Inflammation [Not Recovered/Not Resolved]

NARRATIVE: CASE EVENT DATE: 20160614
